FAERS Safety Report 20474755 (Version 25)
Quarter: 2022Q4

REPORT INFORMATION
  Report Type: Report from Study
  Country: FR (occurrence: FR)
  Receive Date: 20220215
  Receipt Date: 20221207
  Transmission Date: 20230113
  Serious: Yes (Hospitalization, Other)
  Sender: FDA-Public Use
  Company Number: FR-GILEAD-2022-0566114

PATIENT
  Age: 76 Year
  Sex: Female
  Weight: 79 kg

DRUGS (28)
  1. SACITUZUMAB GOVITECAN [Suspect]
     Active Substance: SACITUZUMAB GOVITECAN
     Indication: Triple negative breast cancer
     Dosage: 7.7 MG/KG, C15D1 AND C15D8
     Route: 042
     Dates: start: 20221014, end: 20221021
  2. SACITUZUMAB GOVITECAN [Suspect]
     Active Substance: SACITUZUMAB GOVITECAN
     Dosage: 7.7 MG/KG, C14D1 D8
     Route: 042
     Dates: start: 20220923, end: 20220930
  3. SACITUZUMAB GOVITECAN [Suspect]
     Active Substance: SACITUZUMAB GOVITECAN
     Dosage: 7.7 MG/KG, C13D1 AND C13D8
     Route: 042
     Dates: start: 20220826, end: 20220902
  4. SACITUZUMAB GOVITECAN [Suspect]
     Active Substance: SACITUZUMAB GOVITECAN
     Dosage: 7.7 MG/KG ON C12D1 AND C12D8
     Route: 042
     Dates: start: 20220804, end: 20220811
  5. SACITUZUMAB GOVITECAN [Suspect]
     Active Substance: SACITUZUMAB GOVITECAN
     Dosage: 7.7 MG/KG, C11 D1-D8
     Route: 042
     Dates: start: 20220715, end: 20220722
  6. SACITUZUMAB GOVITECAN [Suspect]
     Active Substance: SACITUZUMAB GOVITECAN
     Dosage: 7.7 MG/KG, C10 D1 (D8 NOT DONE)
     Route: 042
     Dates: start: 20220624, end: 20220630
  7. SACITUZUMAB GOVITECAN [Suspect]
     Active Substance: SACITUZUMAB GOVITECAN
     Dosage: 7.692 MG/KG, C9D1,D8
     Route: 042
     Dates: start: 20220602, end: 20220624
  8. SACITUZUMAB GOVITECAN [Suspect]
     Active Substance: SACITUZUMAB GOVITECAN
     Dosage: 7.9 MG/KG, C8D1 AND C8D8
     Route: 042
     Dates: start: 20220505, end: 20220512
  9. SACITUZUMAB GOVITECAN [Suspect]
     Active Substance: SACITUZUMAB GOVITECAN
     Dosage: 7.9 MG/KG, C7D1 AND C7D8
     Route: 042
     Dates: start: 20220414, end: 20220421
  10. SACITUZUMAB GOVITECAN [Suspect]
     Active Substance: SACITUZUMAB GOVITECAN
     Dosage: 7.8 MG/KG, C6D1 AND C6D8
     Route: 042
     Dates: start: 20220324, end: 20220331
  11. SACITUZUMAB GOVITECAN [Suspect]
     Active Substance: SACITUZUMAB GOVITECAN
     Dosage: 10 MG/KG, C5D1 AND C5D8
     Route: 042
     Dates: start: 20220303, end: 20220310
  12. SACITUZUMAB GOVITECAN [Suspect]
     Active Substance: SACITUZUMAB GOVITECAN
     Dosage: 7.9 MG/KG, C4D1 AND C4D8
     Route: 042
     Dates: start: 20220210, end: 20220217
  13. SACITUZUMAB GOVITECAN [Suspect]
     Active Substance: SACITUZUMAB GOVITECAN
     Dosage: 7.9 MG/KG, C3D1 AND C3D8
     Route: 042
     Dates: start: 20220120, end: 20220127
  14. SACITUZUMAB GOVITECAN [Suspect]
     Active Substance: SACITUZUMAB GOVITECAN
     Dosage: 9.75 MG/KG, C2D1 AND C2D8
     Route: 042
     Dates: start: 20211230, end: 20220106
  15. SACITUZUMAB GOVITECAN [Suspect]
     Active Substance: SACITUZUMAB GOVITECAN
     Dosage: 9.75 MG/KG, C1D1 AND C1D8
     Route: 042
     Dates: start: 20211209, end: 20211216
  16. SACITUZUMAB GOVITECAN [Suspect]
     Active Substance: SACITUZUMAB GOVITECAN
     Dosage: 7.692 MG/KG, C9D1
     Route: 042
     Dates: start: 20220602
  17. SACITUZUMAB GOVITECAN [Suspect]
     Active Substance: SACITUZUMAB GOVITECAN
     Dosage: 7.692 MG/KG, C9D8
     Route: 042
     Dates: start: 20220624
  18. SACITUZUMAB GOVITECAN [Suspect]
     Active Substance: SACITUZUMAB GOVITECAN
     Dosage: 7.7 MG/KG, C16D1
     Route: 042
     Dates: start: 20221104, end: 20221104
  19. SACITUZUMAB GOVITECAN [Suspect]
     Active Substance: SACITUZUMAB GOVITECAN
     Dosage: 600 MG
     Route: 042
     Dates: start: 20221110, end: 20221110
  20. KEPPRA [Suspect]
     Active Substance: LEVETIRACETAM
     Indication: Metastases to central nervous system
     Dosage: 750 MG
     Route: 042
     Dates: start: 20211230
  21. KEPPRA [Suspect]
     Active Substance: LEVETIRACETAM
     Indication: Epilepsy
     Dosage: 750 MG, BID
     Route: 042
     Dates: start: 20211026
  22. METHYLPREDNISOLONE [Concomitant]
     Active Substance: METHYLPREDNISOLONE
     Indication: Metastases to central nervous system
     Dosage: UNK
     Dates: start: 20211118
  23. METHYLPREDNISOLONE [Concomitant]
     Active Substance: METHYLPREDNISOLONE
     Dosage: UNK
     Dates: start: 20220127
  24. PANTOPRAZOLE [Concomitant]
     Active Substance: PANTOPRAZOLE
     Indication: Abdominal pain upper
     Dosage: UNK
     Dates: start: 20191121
  25. IMOVANE [Concomitant]
     Active Substance: ZOPICLONE
     Indication: Insomnia
     Dosage: UNK
     Dates: start: 20211104
  26. ACETAMINOPHEN [Concomitant]
     Active Substance: ACETAMINOPHEN
     Indication: Pain
     Dosage: UNK
     Dates: start: 20211230
  27. AUGMENTIN [Concomitant]
     Active Substance: AMOXICILLIN\CLAVULANATE POTASSIUM
     Dosage: UNK
     Dates: start: 20220104
  28. PREDNISOLONE [Concomitant]
     Active Substance: PREDNISOLONE
     Indication: Metastases to central nervous system
     Dosage: UNK
     Dates: start: 20211216

REACTIONS (41)
  - Lung disorder [Recovered/Resolved]
  - General physical condition abnormal [Recovered/Resolved]
  - General physical condition abnormal [Recovered/Resolved]
  - General physical health deterioration [Recovered/Resolved]
  - Epilepsy [Recovered/Resolved]
  - Epilepsy [Recovered/Resolved]
  - Seizure [Recovered/Resolved]
  - Seizure [Recovered/Resolved]
  - Hyperthermia [Recovered/Resolved]
  - Pyrexia [Recovered/Resolved]
  - Febrile neutropenia [Recovered/Resolved]
  - Diarrhoea [Recovered/Resolved]
  - Asthenia [Recovered/Resolved]
  - Asthenia [Recovered/Resolved]
  - Asthenia [Recovered/Resolved]
  - Balance disorder [Recovered/Resolved]
  - Balance disorder [Recovered/Resolved]
  - Balance disorder [Recovered/Resolved]
  - Asthenia [Recovered/Resolved]
  - Alopecia [Not Recovered/Not Resolved]
  - Asthenia [Not Recovered/Not Resolved]
  - Asthenia [Not Recovered/Not Resolved]
  - Diarrhoea [Not Recovered/Not Resolved]
  - Pain in extremity [Not Recovered/Not Resolved]
  - Memory impairment [Not Recovered/Not Resolved]
  - Depression [Unknown]
  - Anxiety [Unknown]
  - Haematoma [Not Recovered/Not Resolved]
  - Bleeding varicose vein [Not Recovered/Not Resolved]
  - Varicose ulceration [Not Recovered/Not Resolved]
  - Eyelid ptosis [Recovered/Resolved]
  - Hypoaesthesia [Recovered/Resolved]
  - Headache [Not Recovered/Not Resolved]
  - Incorrect dose administered [Unknown]
  - Inappropriate schedule of product administration [Unknown]
  - Inappropriate schedule of product administration [Unknown]
  - Product use issue [Not Recovered/Not Resolved]
  - Intentional dose omission [Unknown]
  - Off label use [Unknown]
  - Inappropriate schedule of product administration [Unknown]
  - Off label use [Unknown]

NARRATIVE: CASE EVENT DATE: 20211209
